FAERS Safety Report 13689387 (Version 1)
Quarter: 2017Q2

REPORT INFORMATION
  Report Type: Spontaneous
  Country: US (occurrence: US)
  Receive Date: 20170625
  Receipt Date: 20170625
  Transmission Date: 20170830
  Serious: Yes (Other)
  Sender: FDA-Public Use
  Company Number: None

PATIENT
  Age: 57 Year
  Sex: Female
  Weight: 85.5 kg

DRUGS (9)
  1. CONTRAVE [Suspect]
     Active Substance: BUPROPION HYDROCHLORIDE\NALTREXONE HYDROCHLORIDE
     Indication: WEIGHT CONTROL
     Dosage: ?          QUANTITY:1 TABLET(S);?
     Route: 048
  2. LIPITOR [Concomitant]
     Active Substance: ATORVASTATIN CALCIUM
  3. FISH OIL [Concomitant]
     Active Substance: FISH OIL
  4. TURMERIC [Concomitant]
     Active Substance: HERBALS\TURMERIC
  5. VITAMIN C [Concomitant]
     Active Substance: ASCORBIC ACID
  6. CRANBERRY. [Concomitant]
     Active Substance: CRANBERRY
  7. D-3 [Concomitant]
     Active Substance: CHOLECALCIFEROL
  8. MSM-CHONDRITAN [Concomitant]
  9. IBUPROFEN. [Concomitant]
     Active Substance: IBUPROFEN

REACTIONS (2)
  - Haemorrhage [None]
  - Amenorrhoea [None]

NARRATIVE: CASE EVENT DATE: 20170624
